FAERS Safety Report 9532972 (Version 2)
Quarter: 2013Q3

REPORT INFORMATION
  Report Type: Report from Study
  Country: US (occurrence: US)
  Receive Date: 20130918
  Receipt Date: 20130918
  Transmission Date: 20140515
  Serious: Yes (Hospitalization, Other)
  Sender: FDA-Public Use
  Company Number: US-ABBVIE-13P-163-1093250-00

PATIENT
  Age: 46 Year
  Sex: Female

DRUGS (10)
  1. HUMIRA [Suspect]
     Indication: COLITIS ULCERATIVE
     Dates: start: 20130208, end: 20130606
  2. DILAUDID [Suspect]
     Indication: PAIN
     Dates: start: 201305
  3. ASACOL [Concomitant]
     Indication: COLITIS ULCERATIVE
     Dosage: 800 MG TABLETS (X6) DAILY
  4. CANASA [Concomitant]
     Indication: COLITIS ULCERATIVE
  5. OMEPRAZOLE [Concomitant]
     Indication: GASTROOESOPHAGEAL REFLUX DISEASE
  6. PROPRANOLOL [Concomitant]
     Indication: MIGRAINE PROPHYLAXIS
  7. FLUOXETINE [Concomitant]
     Indication: DEPRESSION
  8. IRON [Concomitant]
     Indication: ANAEMIA
  9. RESTASIS [Concomitant]
     Indication: PRODUCT USED FOR UNKNOWN INDICATION
  10. RETIN A [Concomitant]
     Indication: PRODUCT USED FOR UNKNOWN INDICATION

REACTIONS (6)
  - Uterine leiomyoma [Not Recovered/Not Resolved]
  - Abdominal pain upper [Unknown]
  - Back pain [Not Recovered/Not Resolved]
  - Kidney infection [Not Recovered/Not Resolved]
  - Ovarian cyst [Not Recovered/Not Resolved]
  - Feeling abnormal [Unknown]
